FAERS Safety Report 20833101 (Version 1)
Quarter: 2022Q2

REPORT INFORMATION
  Report Type: Spontaneous
  Country: US (occurrence: None)
  Receive Date: 20220514
  Receipt Date: 20220514
  Transmission Date: 20220720
  Serious: Yes (Hospitalization)
  Sender: FDA-Public Use
  Company Number: None

PATIENT
  Age: 75 Year
  Sex: Female
  Weight: 74.84 kg

DRUGS (1)
  1. TAXOTERE [Suspect]
     Active Substance: DOCETAXEL
     Dates: end: 20220413

REACTIONS (5)
  - Rectal haemorrhage [None]
  - Haemorrhoids [None]
  - Hyperlipidaemia [None]
  - Hypertension [None]
  - Leukocytosis [None]

NARRATIVE: CASE EVENT DATE: 20220421
